FAERS Safety Report 8994591 (Version 1)
Quarter: 2012Q4

REPORT INFORMATION
  Report Type: Spontaneous
  Country: US (occurrence: None)
  Receive Date: 20121228
  Receipt Date: 20121228
  Transmission Date: 20130627
  Serious: Yes (Other)
  Sender: FDA-Public Use
  Company Number: None

PATIENT
  Age: 4 Year
  Sex: Female
  Weight: 15.2 kg

DRUGS (1)
  1. TAMIFLU FOR ORAL SUSPENSION 6MG/ML GENENTECH [Suspect]
     Indication: FLU
     Dosage: 1 1/2 teaspoon Twice Daily po
     Dates: start: 20121224, end: 20121224

REACTIONS (2)
  - Nightmare [None]
  - Abnormal behaviour [None]
